FAERS Safety Report 8460134 (Version 3)
Quarter: 2013Q1

REPORT INFORMATION
  Report Type: Spontaneous
  Country: US (occurrence: None)
  Receive Date: 20120223
  Receipt Date: 20130204
  Transmission Date: 20140127
  Serious: Yes (Hospitalization, Other)
  Sender: FDA-Public Use
  Company Number: 2012031163

PATIENT
  Age: 65 Year
  Sex: Female
  Weight: 67.13 kg

DRUGS (32)
  1. HIZENTRA [Suspect]
     Indication: IMMUNODEFICIENCY COMMON VARIABLE
     Dosage: 8 GM 1X/WEEK, 4 GM 20 ML VIAL; 40 ML IN 4 SITES OVER 1-2 HOURS SUBCUTANEOUS
     Dates: start: 20110210
  2. FLUOXETINE [Concomitant]
  3. ASPIRIN (ACETYLSALICYLIC ACID) [Concomitant]
  4. FAMOTIDINE (FAMOTIDINE) [Concomitant]
  5. ENTOCORT EC [Concomitant]
  6. CARTIA XT [Concomitant]
  7. ESTRING [Concomitant]
  8. AMERGE [Concomitant]
  9. PULMICORT FLEXHALER [Concomitant]
  10. SPIRONOLACTONE [Concomitant]
  11. LEXAPRO [Concomitant]
  12. DUONEB [Concomitant]
  13. FLUTICASONE PROPIONATE [Concomitant]
  14. PATANOL [Concomitant]
  15. TEVETEN [Concomitant]
  16. SEREVENT DISKUS [Concomitant]
  17. MULTIVITAMIN (ACCOMIN MULTIVITAMIN) [Concomitant]
  18. FOLIC ACID [Concomitant]
  19. VITAMIN E [Concomitant]
  20. XOPENEX [Concomitant]
  21. FOLCAPS (VITAMINS) [Concomitant]
  22. VANCOCIN (VANCOMYCIN HYDROCHLORIDE) [Concomitant]
  23. ACETAMINOPHEN (PARACETAMOL) [Concomitant]
  24. DIPHENHYDRAMINE (DIPHENHYDRAMINE) [Concomitant]
  25. LIDOCAINE/PRILOCAINE (EMLA /00675501/) [Concomitant]
  26. EPIPEN (EPINEPHRINE) [Concomitant]
  27. RESTASIS (CICLOSPORIN) [Concomitant]
  28. METOPROLOL (METOPROLOL) [Concomitant]
  29. DILTIAZEM [Concomitant]
  30. CLARITIN (LORATADINE) [Concomitant]
  31. BIFERA (IRON) [Concomitant]
  32. DEXILANT (ALL OTHER THERAPEUTIC PRODUCTS) [Concomitant]

REACTIONS (7)
  - Lung infection [None]
  - Clostridial infection [None]
  - Nausea [None]
  - Vomiting [None]
  - Diarrhoea [None]
  - Abdominal pain [None]
  - Infusion site reaction [None]
